FAERS Safety Report 4980439-6 (Version None)
Quarter: 2006Q2

REPORT INFORMATION
  Report Type: 
  Country: None (occurrence: None)
  Receive Date: 20060424
  Receipt Date: 20060413
  Transmission Date: 20061013
  Serious: Yes (Hospitalization)
  Sender: FDA-Public Use
  Company Number: JP-JPN-A200601249

PATIENT
  Age: 70 Year
  Sex: Female

DRUGS (5)
  1. ZANTAC [Suspect]
     Indication: DRUG USE FOR UNKNOWN INDICATION
     Route: 048
     Dates: start: 20060201
  2. NIPOLAZIN [Concomitant]
     Route: 048
     Dates: start: 20060201
  3. UNSPECIFIED MEDICATION [Concomitant]
     Route: 048
     Dates: start: 20060201
  4. SERMION [Concomitant]
     Route: 048
  5. SELBEX [Concomitant]
     Route: 048

REACTIONS (1)
  - HEPATITIS FULMINANT [None]
